FAERS Safety Report 6669486-6 (Version None)
Quarter: 2010Q2

REPORT INFORMATION
  Report Type: 
  Country: None (occurrence: None)
  Receive Date: 20100406
  Receipt Date: 20100329
  Transmission Date: 20101027
  Serious: Yes (Other)
  Sender: FDA-Public Use
  Company Number: PHEH2008US10988

PATIENT
  Sex: Male

DRUGS (29)
  1. ELIDEL [Suspect]
     Indication: ECZEMA
     Dosage: UNK, UNK
     Route: 061
     Dates: start: 20040101
  2. CLOBETASOL PROPIONATE [Concomitant]
     Dosage: 0.05 % SPRAY
  3. DESONIDE [Concomitant]
     Dosage: 0.05 % LOTION
  4. TRIAMCINOLONE [Concomitant]
     Dosage: 0.1% OINTMENT
  5. MUPIROCIN [Concomitant]
     Dosage: 2% OINTMENT
  6. AMOXICILLIN [Concomitant]
     Dosage: 125 MG ORAL
  7. TEMOVATE [Concomitant]
  8. FLUOCINONIDE [Concomitant]
  9. CLARINEX                                /USA/ [Concomitant]
  10. FLEXERIL [Concomitant]
  11. OXYCODONE [Concomitant]
  12. OXSORALEN-ULTRA [Concomitant]
  13. TARGRETIN [Concomitant]
  14. KETOCONAZOLE [Concomitant]
  15. SIMVASTATIN [Concomitant]
  16. MORPHINE SULFATE [Concomitant]
  17. ALLEGRA D 24 HOUR [Concomitant]
  18. OXYCONTIN [Concomitant]
  19. DOXIL [Suspect]
  20. TOBRAMYCIN [Concomitant]
  21. ZOSYN [Concomitant]
  22. BACTRIM [Concomitant]
  23. HYDROCORTISONE [Concomitant]
  24. CEFTIN [Concomitant]
  25. GEMZAR [Suspect]
  26. ONTAK [Concomitant]
  27. CLOBETASOL PROPIONATE [Concomitant]
     Dosage: UNK
  28. BIAFINE [Concomitant]
     Dosage: UNK
  29. OXSORALEN-ULTRA [Concomitant]
     Dosage: UNK

REACTIONS (8)
  - ACTINIC KERATOSIS [None]
  - ERYTHEMA [None]
  - GENERAL PHYSICAL HEALTH DETERIORATION [None]
  - MYCOSIS FUNGOIDES [None]
  - OEDEMA PERIPHERAL [None]
  - PERIPHERAL T-CELL LYMPHOMA UNSPECIFIED [None]
  - PYODERMA [None]
  - SUNBURN [None]
